FAERS Safety Report 5691166-4 (Version None)
Quarter: 2008Q2

REPORT INFORMATION
  Report Type: 
  Country: None (occurrence: None)
  Receive Date: 20080401
  Receipt Date: 20080401
  Transmission Date: 20081010
  Serious: Yes (Other)
  Sender: FDA-Public Use
  Company Number: None

PATIENT
  Sex: Female
  Weight: 58.9676 kg

DRUGS (3)
  1. HYDROCODONE BITARTRATE + ACETAMINOPHEN [Suspect]
     Indication: ANALGESIA
     Dosage: 1-2 TABLETS EVERY 4-6 HRS PO
     Route: 048
     Dates: start: 20080111, end: 20080301
  2. EFFEXOR [Concomitant]
  3. KLONOPIN [Concomitant]

REACTIONS (6)
  - FEELING ABNORMAL [None]
  - ILL-DEFINED DISORDER [None]
  - INSOMNIA [None]
  - PANIC ATTACK [None]
  - UNEVALUABLE EVENT [None]
  - WITHDRAWAL SYNDROME [None]
